FAERS Safety Report 24454231 (Version 2)
Quarter: 2024Q4

REPORT INFORMATION
  Report Type: Report from Study
  Country: US (occurrence: US)
  Receive Date: 20241017
  Receipt Date: 20241018
  Transmission Date: 20250115
  Serious: No
  Sender: ROCHE
  Company Number: US-ROCHE-3468476

PATIENT
  Age: 70 Year
  Sex: Female

DRUGS (2)
  1. RITUXAN [Suspect]
     Active Substance: RITUXIMAB
     Indication: Autoimmune haemolytic anaemia
     Dosage: VIAL INFUSE 850MG INTRAVENOUSLY ONCE WEEKLY AS DIRECTED
     Route: 042
  2. RITUXAN [Suspect]
     Active Substance: RITUXIMAB
     Dosage: VIAL, INFUSE 850MG INTRAVENOUSLY ONCE WEEKLY AS DIRECTED
     Route: 042

REACTIONS (3)
  - Incorrect dose administered [Unknown]
  - Off label use [Unknown]
  - No adverse event [Unknown]
